FAERS Safety Report 9778571 (Version 1)
Quarter: 2013Q4

REPORT INFORMATION
  Report Type: Spontaneous
  Country: BR (occurrence: BR)
  Receive Date: 20131223
  Receipt Date: 20131223
  Transmission Date: 20140711
  Serious: Yes (Hospitalization)
  Sender: FDA-Public Use
  Company Number: BR-SA-2013SA130271

PATIENT
  Age: 62 Year
  Sex: Male
  Weight: 116 kg

DRUGS (4)
  1. ELOXATIN [Suspect]
     Indication: COLON CANCER
     Dosage: INFUSION
     Route: 042
     Dates: start: 20130307, end: 20130307
  2. ELOXATIN [Suspect]
     Indication: COLON CANCER
     Dosage: INFUSION
     Route: 042
     Dates: start: 20131212, end: 20131212
  3. KYTRIL [Concomitant]
     Route: 042
  4. DEXAMETHASONE [Concomitant]
     Route: 042

REACTIONS (8)
  - Blood pressure increased [Not Recovered/Not Resolved]
  - Face oedema [Not Recovered/Not Resolved]
  - Oxygen saturation [Not Recovered/Not Resolved]
  - Hyperaemia [Not Recovered/Not Resolved]
  - Dyspnoea [Not Recovered/Not Resolved]
  - Abdominal pain upper [Not Recovered/Not Resolved]
  - Tremor [Not Recovered/Not Resolved]
  - Pyrexia [Not Recovered/Not Resolved]
